FAERS Safety Report 5418996-8 (Version None)
Quarter: 2007Q3

REPORT INFORMATION
  Report Type: 
  Country: None (occurrence: None)
  Receive Date: 20070817
  Receipt Date: 20070809
  Transmission Date: 20080115
  Serious: Yes (Other)
  Sender: FDA-Public Use
  Company Number: US-PFIZER INC-2007066681

PATIENT
  Sex: Male
  Weight: 86.363 kg

DRUGS (4)
  1. LIPITOR [Suspect]
     Indication: BLOOD CHOLESTEROL
  2. TRICOR [Suspect]
     Indication: BLOOD CHOLESTEROL
  3. PRAVACHOL [Suspect]
     Indication: BLOOD CHOLESTEROL
  4. ZOCOR [Suspect]
     Indication: BLOOD CHOLESTEROL

REACTIONS (4)
  - ASTHENIA [None]
  - BLOOD CREATINE PHOSPHOKINASE INCREASED [None]
  - MYALGIA [None]
  - SILENT MYOCARDIAL INFARCTION [None]
